FAERS Safety Report 8811723 (Version 1)
Quarter: 2012Q4

REPORT INFORMATION
  Report Type: Spontaneous
  Country: IT (occurrence: None)
  Receive Date: 20120924
  Receipt Date: 20120924
  Transmission Date: 20130627
  Serious: Yes (Death, Hospitalization)
  Sender: FDA-Public Use
  Company Number: AUR-APL-2012-04017

PATIENT
  Age: 75 Year
  Sex: Male

DRUGS (11)
  1. METFORMIN (METFORMIN) [Suspect]
     Indication: DIABETES
     Route: 048
     Dates: start: 20120902, end: 20120902
  2. TRIATEC [Concomitant]
  3. CARDICOR (BISOPROLOL FUMARATE) [Concomitant]
  4. CORDARONE (AMIODARONE HYDROCHLORIDE) [Concomitant]
  5. LASIX (FUROSEMIDE) [Concomitant]
  6. PANTORC (PANTOPRAZOLE SODIUM) [Concomitant]
  7. PLAVIX (CLOPIDOGREL) [Concomitant]
  8. OXYCONTIN (OXYCODONE HYDROCHLORIDE) [Concomitant]
  9. LYRICA (PREGABALIN) [Concomitant]
  10. LANTUS (INSULIN GLARGINE) [Concomitant]
  11. COUMADIN (WARFARIN SODIUM) [Concomitant]

REACTIONS (7)
  - Metabolic acidosis [None]
  - Blood bicarbonate decreased [None]
  - Blood potassium increased [None]
  - Blood creatinine increased [None]
  - Cardiac arrest [None]
  - Asthenia [None]
  - Dyspnoea [None]
